FAERS Safety Report 21094609 (Version 3)
Quarter: 2022Q3

REPORT INFORMATION
  Report Type: Report from Study
  Country: US (occurrence: None)
  Receive Date: 20220718
  Receipt Date: 20220811
  Transmission Date: 20221027
  Serious: Yes (Hospitalization)
  Sender: FDA-Public Use
  Company Number: US-ROCHE-3133770

PATIENT
  Age: 58 Year
  Sex: Male
  Weight: 73.8 kg

DRUGS (3)
  1. ATEZOLIZUMAB [Suspect]
     Active Substance: ATEZOLIZUMAB
     Indication: Small cell lung cancer
     Route: 041
     Dates: end: 20210810
  2. CARBOPLATIN [Suspect]
     Active Substance: CARBOPLATIN
     Indication: Small cell lung cancer
     Route: 065
     Dates: end: 20210519
  3. ETOPOSIDE [Suspect]
     Active Substance: ETOPOSIDE
     Indication: Small cell lung cancer
     Route: 065
     Dates: end: 20210521

REACTIONS (7)
  - Radiation pneumonitis [Unknown]
  - Small intestinal obstruction [Unknown]
  - Device related thrombosis [Unknown]
  - Cerebrovascular accident [Unknown]
  - Radiation pneumonitis [Unknown]
  - Atrial flutter [Unknown]
  - Skin infection [Unknown]

NARRATIVE: CASE EVENT DATE: 20210609
